FAERS Safety Report 22015503 (Version 2)
Quarter: 2023Q1

REPORT INFORMATION
  Report Type: Spontaneous
  Country: FR (occurrence: FR)
  Receive Date: 20230221
  Receipt Date: 20230308
  Transmission Date: 20230417
  Serious: Yes (Other)
  Sender: FDA-Public Use
  Company Number: FR-ABBVIE-4313572

PATIENT
  Sex: Male

DRUGS (1)
  1. SEVOFLURANE [Suspect]
     Active Substance: SEVOFLURANE
     Indication: Product used for unknown indication
     Route: 055

REACTIONS (10)
  - Fungal pharyngitis [Unknown]
  - Taste disorder [Unknown]
  - Pulmonary pain [Unknown]
  - Dyspnoea [Unknown]
  - Fatigue [Unknown]
  - Thermal burn [Unknown]
  - Oropharyngeal pain [Unknown]
  - Pharyngeal erythema [Unknown]
  - Erythema [Unknown]
  - Throat irritation [Unknown]

NARRATIVE: CASE EVENT DATE: 20230101
